FAERS Safety Report 21462719 (Version 1)
Quarter: 2022Q4

REPORT INFORMATION
  Report Type: Report from Study
  Country: US (occurrence: US)
  Receive Date: 20221017
  Receipt Date: 20221017
  Transmission Date: 20230112
  Serious: Yes (Hospitalization)
  Sender: FDA-Public Use
  Company Number: US-BoehringerIngelheim-2022-BI-189070

PATIENT
  Age: 71 Year
  Sex: Female

DRUGS (1)
  1. OFEV [Suspect]
     Active Substance: NINTEDANIB
     Indication: Interstitial lung disease
     Dosage: WITH MEALS
     Route: 048
     Dates: start: 20220822

REACTIONS (16)
  - Abdominal pain upper [Unknown]
  - Gastrointestinal motility disorder [Unknown]
  - Weight decreased [Unknown]
  - Dry mouth [Unknown]
  - Fatigue [Unknown]
  - Constipation [Unknown]
  - Diarrhoea [Unknown]
  - Decreased appetite [Unknown]
  - Hypertension [Unknown]
  - Glucose tolerance impaired [Unknown]
  - Dental caries [Unknown]
  - Hepatic steatosis [Unknown]
  - Hypertension [Not Recovered/Not Resolved]
  - Diarrhoea [Recovered/Resolved]
  - Abdominal pain lower [Recovered/Resolved]
  - COVID-19 [Recovered/Resolved]

NARRATIVE: CASE EVENT DATE: 20220801
